FAERS Safety Report 12724014 (Version 4)
Quarter: 2016Q4

REPORT INFORMATION
  Report Type: Report from Study
  Country: CO (occurrence: CO)
  Receive Date: 20160908
  Receipt Date: 20161117
  Transmission Date: 20170207
  Serious: Yes (Hospitalization)
  Sender: FDA-Public Use
  Company Number: PHHY2016CO122548

PATIENT
  Sex: Female
  Weight: 65 kg

DRUGS (3)
  1. TASIGNA [Suspect]
     Active Substance: NILOTINIB
     Indication: CHRONIC MYELOID LEUKAEMIA
     Dosage: 2 DF, Q12H
     Route: 048
     Dates: start: 20100120
  2. LEVOTHYROXINE. [Concomitant]
     Active Substance: LEVOTHYROXINE
     Indication: THYROID DISORDER
     Dosage: 75 MG, QD
     Route: 065
  3. TASIGNA [Suspect]
     Active Substance: NILOTINIB
     Dosage: 400 MG, Q12H (TWO 200 MG CAPSULES EVERY HOURS)
     Route: 048
     Dates: start: 201410

REACTIONS (5)
  - Cholelithiasis [Unknown]
  - Gallbladder pain [Unknown]
  - Gallbladder injury [Unknown]
  - Pyrexia [Unknown]
  - Abdominal pain upper [Unknown]
